FAERS Safety Report 26027785 (Version 1)
Quarter: 2025Q4

REPORT INFORMATION
  Report Type: Report from Study
  Country: JP (occurrence: JP)
  Receive Date: 20251111
  Receipt Date: 20251111
  Transmission Date: 20260118
  Serious: Yes (Other)
  Sender: OTSUKA
  Company Number: JP-MMM-Otsuka-UXC7Y81P

PATIENT
  Age: 55 Year
  Sex: Male
  Weight: 58.4 kg

DRUGS (16)
  1. TOLVAPTAN [Suspect]
     Active Substance: TOLVAPTAN
     Indication: Cardiac failure
     Dosage: 3.75 MG, DAILY
     Dates: start: 20240307, end: 20240308
  2. TOLVAPTAN [Suspect]
     Active Substance: TOLVAPTAN
     Indication: Fluid retention
  3. TOLVAPTAN [Suspect]
     Active Substance: TOLVAPTAN
     Indication: Cardiac failure
     Dosage: 4 MG, QD
     Dates: start: 20240306, end: 20240306
  4. TOLVAPTAN [Suspect]
     Active Substance: TOLVAPTAN
     Indication: Fluid retention
     Dosage: 4 MG, QD
     Dates: start: 20240309, end: 20240309
  5. TOLVAPTAN [Suspect]
     Active Substance: TOLVAPTAN
     Dosage: 8 MG, QD
     Dates: start: 20240310, end: 20240310
  6. FUROSEMIDE [Concomitant]
     Active Substance: FUROSEMIDE
     Indication: Diuretic therapy
     Dosage: 20 MG, DAILY
     Route: 050
     Dates: start: 20240306, end: 20240306
  7. FUROSEMIDE [Concomitant]
     Active Substance: FUROSEMIDE
     Dosage: 40 MG, DAILY
     Route: 050
     Dates: start: 20240307, end: 20240308
  8. FUROSEMIDE [Concomitant]
     Active Substance: FUROSEMIDE
     Dosage: 100 MG, DAILY
     Route: 050
     Dates: start: 20240309, end: 20240311
  9. FUROSEMIDE [Concomitant]
     Active Substance: FUROSEMIDE
     Indication: Diuretic therapy
     Dosage: 20 MG, DAILY
     Dates: end: 20240311
  10. SPIRONOLACTONE [Concomitant]
     Active Substance: SPIRONOLACTONE
     Indication: Diuretic therapy
     Dosage: 25 MG, DAILY
     Dates: end: 20240311
  11. JARDIANCE [Concomitant]
     Active Substance: EMPAGLIFLOZIN
     Indication: Cardiac failure
     Dosage: UNK
  12. BISOPROLOL FUMARATE [Concomitant]
     Active Substance: BISOPROLOL FUMARATE
     Indication: Cardiac failure
     Dosage: UNK
  13. EDOXABAN TOSYLATE [Concomitant]
     Active Substance: EDOXABAN TOSYLATE
     Indication: Disease complication
     Dosage: UNK
  14. DOBUTAMINE [Concomitant]
     Active Substance: DOBUTAMINE HYDROCHLORIDE
     Indication: Cardiac failure
     Dosage: UNK
     Route: 050
     Dates: start: 20240307, end: 20240311
  15. LANDIOLOL HYDROCHLORIDE [Concomitant]
     Active Substance: LANDIOLOL HYDROCHLORIDE
     Indication: Disease complication
     Dosage: UNK
     Route: 050
     Dates: start: 20240307, end: 20240311
  16. AMIODARONE [Concomitant]
     Active Substance: AMIODARONE
     Indication: Disease complication
     Dosage: UNK
     Route: 050
     Dates: start: 20240308, end: 20240311

REACTIONS (4)
  - Cardiac failure [Unknown]
  - Blood sodium increased [Unknown]
  - Underdose [Unknown]
  - Drug monitoring procedure incorrectly performed [Unknown]

NARRATIVE: CASE EVENT DATE: 20240301
